FAERS Safety Report 10566175 (Version 2)
Quarter: 2014Q4

REPORT INFORMATION
  Report Type: Spontaneous
  Country: DE (occurrence: DE)
  Receive Date: 20141105
  Receipt Date: 20141129
  Transmission Date: 20150529
  Serious: No
  Sender: FDA-Public Use
  Company Number: DE-GALDERMA-DE14004084

PATIENT
  Age: 45 Year
  Sex: Female

DRUGS (1)
  1. MIRVASO [Suspect]
     Active Substance: BRIMONIDINE TARTRATE
     Indication: DERMATITIS
     Route: 061
     Dates: start: 20140906, end: 20140907

REACTIONS (6)
  - Dermatitis [Recovering/Resolving]
  - Hot flush [Recovering/Resolving]
  - Product use issue [Recovered/Resolved]
  - Feeling hot [Recovering/Resolving]
  - Erythema [Recovering/Resolving]
  - Hypersensitivity [None]

NARRATIVE: CASE EVENT DATE: 201409
